FAERS Safety Report 21362561 (Version 1)
Quarter: 2022Q3

REPORT INFORMATION
  Report Type: Spontaneous
  Country: DE (occurrence: DE)
  Receive Date: 20220922
  Receipt Date: 20220922
  Transmission Date: 20221027
  Serious: Yes (Disabling, Other)
  Sender: FDA-Public Use
  Company Number: None

PATIENT
  Age: 58 Year
  Sex: Male
  Weight: 78 kg

DRUGS (6)
  1. AMLODIPINE BESYLATE [Suspect]
     Active Substance: AMLODIPINE BESYLATE
     Indication: Hypertension
     Dosage: UNK
     Route: 065
     Dates: start: 202111, end: 20220819
  2. OPIPRAMOL [Suspect]
     Active Substance: OPIPRAMOL
     Indication: Tension
     Dosage: UNK
     Route: 065
     Dates: start: 202201, end: 20220819
  3. OPIPRAMOL [Suspect]
     Active Substance: OPIPRAMOL
     Indication: Restlessness
  4. INDAPAMIDE [Suspect]
     Active Substance: INDAPAMIDE
     Indication: Hypertension
     Dosage: UNK
     Route: 065
     Dates: start: 202111, end: 20220819
  5. CANDESARTAN [Concomitant]
     Active Substance: CANDESARTAN
     Indication: Hypertension
     Dosage: UNK
     Route: 065
     Dates: start: 202111
  6. BISOPROLOL FUMARATE [Concomitant]
     Active Substance: BISOPROLOL FUMARATE
     Indication: Hypertension
     Dosage: UNK
     Route: 065
     Dates: start: 202111

REACTIONS (3)
  - Macular degeneration [Recovered/Resolved with Sequelae]
  - Visual impairment [Recovering/Resolving]
  - Diplopia [Recovering/Resolving]

NARRATIVE: CASE EVENT DATE: 20211101
